FAERS Safety Report 16036756 (Version 1)
Quarter: 2019Q1

REPORT INFORMATION
  Report Type: Spontaneous
  Country: FR (occurrence: FR)
  Receive Date: 20190305
  Receipt Date: 20190305
  Transmission Date: 20190418
  Serious: Yes (Other)
  Sender: FDA-Public Use
  Company Number: FR-PFIZER INC-2019088585

PATIENT
  Age: 5 Year
  Sex: Male

DRUGS (1)
  1. REVATIO [Suspect]
     Active Substance: SILDENAFIL CITRATE
     Indication: PULMONARY HYPERTENSION
     Dosage: 1.8 ML, DAILY
     Route: 050
     Dates: start: 201804

REACTIONS (1)
  - Device defective [Not Recovered/Not Resolved]

NARRATIVE: CASE EVENT DATE: 2018
